FAERS Safety Report 7776794-4 (Version None)
Quarter: 2011Q3

REPORT INFORMATION
  Report Type: 
  Country: None (occurrence: None)
  Receive Date: 20110923
  Receipt Date: 20110923
  Transmission Date: 20111222
  Serious: Yes (Hospitalization)
  Sender: FDA-Public Use
  Company Number: None

PATIENT
  Sex: Female
  Weight: 56.5 kg

DRUGS (2)
  1. CARBOPLATIN [Suspect]
     Dosage: 600 MG
     Dates: end: 20110829
  2. TAXOL [Suspect]
     Dosage: 280 MG
     Dates: end: 20110829

REACTIONS (9)
  - HEADACHE [None]
  - EPIGASTRIC DISCOMFORT [None]
  - NAUSEA [None]
  - ANAEMIA [None]
  - BLOOD PRESSURE DECREASED [None]
  - POLLAKIURIA [None]
  - SEPSIS [None]
  - NEUTROPENIA [None]
  - PYREXIA [None]
